FAERS Safety Report 7449684-4 (Version None)
Quarter: 2011Q2

REPORT INFORMATION
  Report Type: 
  Country: None (occurrence: None)
  Receive Date: 20110421
  Receipt Date: 20110404
  Transmission Date: 20111010
  Serious: Yes (Other)
  Sender: FDA-Public Use
  Company Number: FR-JNJFOC-20101000134

PATIENT
  Age: 34 Year
  Sex: Female
  Weight: 92 kg

DRUGS (5)
  1. FERROUS SULFATE TAB [Concomitant]
  2. FEMIBION (FEMIBION /01597501/) [Concomitant]
  3. PROCTOLOG (PROCTOLOG /01026901/) [Concomitant]
  4. RISPERDAL [Suspect]
     Indication: AFFECTIVE DISORDER
     Dosage: 1 MG, ORAL
     Route: 048
     Dates: start: 20000101, end: 20101101
  5. SPECIAFOLDINE (FOLIC ACID) [Concomitant]

REACTIONS (7)
  - PREMATURE LABOUR [None]
  - PROTEINURIA [None]
  - HYPOTENSION [None]
  - UNEVALUABLE EVENT [None]
  - DRUG EXPOSURE DURING PREGNANCY [None]
  - TWIN PREGNANCY [None]
  - OEDEMA PERIPHERAL [None]
